FAERS Safety Report 4689667-0 (Version None)
Quarter: 2005Q2

REPORT INFORMATION
  Report Type: 
  Country: None (occurrence: None)
  Receive Date: 20050614
  Receipt Date: 20050318
  Transmission Date: 20051028
  Serious: Yes (Disabling, Other)
  Sender: FDA-Public Use
  Company Number: 200512206US

PATIENT
  Sex: Female
  Weight: 48.6 kg

DRUGS (5)
  1. KETEK [Suspect]
     Indication: BRONCHITIS
     Route: 048
     Dates: start: 20050313, end: 20050318
  2. KETEK [Suspect]
     Indication: INFLUENZA
     Route: 048
     Dates: start: 20050313, end: 20050318
  3. THERAFLU [Concomitant]
     Dosage: DOSE: NOT PROVIDED
  4. UNKNOWN DRUG [Concomitant]
     Dosage: DOSE: NOT PROVIDED
  5. BIRTH CONTROL PILLS [Concomitant]
     Dosage: DOSE: NOT PROVIDED

REACTIONS (17)
  - ASTHENIA [None]
  - COLOUR BLINDNESS [None]
  - DECREASED ACTIVITY [None]
  - DIARRHOEA [None]
  - DIPLOPIA [None]
  - DIZZINESS [None]
  - DYSGEUSIA [None]
  - DYSURIA [None]
  - HEPATITIS [None]
  - LIVER FUNCTION TEST ABNORMAL [None]
  - NAUSEA [None]
  - NERVOUSNESS [None]
  - OVERDOSE [None]
  - PHOTOPSIA [None]
  - VISION BLURRED [None]
  - VISUAL DISTURBANCE [None]
  - VOMITING [None]
